FAERS Safety Report 6055712-3 (Version None)
Quarter: 2009Q1

REPORT INFORMATION
  Report Type: 
  Country: None (occurrence: None)
  Receive Date: 20090128
  Receipt Date: 20090123
  Transmission Date: 20090719
  Serious: No
  Sender: FDA-Public Use
  Company Number: HU-AVENTIS-200910738GDDC

PATIENT
  Sex: Female

DRUGS (3)
  1. ARAVA [Suspect]
     Dates: start: 20030301, end: 20031101
  2. ARAVA [Suspect]
     Dates: start: 20031101, end: 20080301
  3. UNKNOWN DRUG [Suspect]
     Dosage: DOSE: UNK
     Dates: start: 20080101

REACTIONS (2)
  - ABORTION INDUCED [None]
  - DRUG EXPOSURE DURING PREGNANCY [None]
